FAERS Safety Report 17289709 (Version 3)
Quarter: 2020Q1

REPORT INFORMATION
  Report Type: Report from Study
  Country: DE (occurrence: DE)
  Receive Date: 20200120
  Receipt Date: 20200128
  Transmission Date: 20200409
  Serious: Yes (Hospitalization)
  Sender: FDA-Public Use
  Company Number: DE-ROCHE-2504614

PATIENT
  Age: 55 Year
  Sex: Female

DRUGS (28)
  1. PANTOZOL [Concomitant]
     Active Substance: PANTOPRAZOLE SODIUM
     Indication: PROPHYLAXIS
     Route: 048
     Dates: start: 20190903
  2. MCP [Concomitant]
     Active Substance: METOCLOPRAMIDE HYDROCHLORIDE
     Route: 048
     Dates: start: 20191204, end: 20191205
  3. HYDROMORPHONE [Concomitant]
     Active Substance: HYDROMORPHONE
     Route: 048
     Dates: end: 20191127
  4. BUSCOPAN PLUS [Concomitant]
     Active Substance: ACETAMINOPHEN\BUTYLSCOPOLAMINE BROMIDE
     Indication: ABDOMINAL PAIN LOWER
     Route: 048
     Dates: start: 20191008
  5. LAXOBERAL [Concomitant]
     Active Substance: SODIUM PICOSULFATE
     Dosage: 15 DROP
     Route: 048
     Dates: start: 20191204
  6. IBUPROFEN. [Concomitant]
     Active Substance: IBUPROFEN
     Route: 047
     Dates: start: 20190930
  7. GASTROGRAFIN [Concomitant]
     Active Substance: DIATRIZOATE MEGLUMINE\DIATRIZOATE SODIUM
     Dosage: 1 OTHER
     Route: 048
     Dates: start: 20191204, end: 20191204
  8. MUCOSOLVAN [Concomitant]
     Active Substance: AMBROXOL HYDROCHLORIDE
     Route: 048
     Dates: start: 20191225
  9. ATEZOLIZUMAB. [Suspect]
     Active Substance: ATEZOLIZUMAB
     Indication: MALIGNANT NEOPLASM OF UNKNOWN PRIMARY SITE
     Route: 041
     Dates: start: 20191211
  10. PACLITAXEL. [Suspect]
     Active Substance: PACLITAXEL
     Indication: MALIGNANT NEOPLASM OF UNKNOWN PRIMARY SITE
     Dosage: 175 MG/M^2, ONCE EVERY 3 WEEKS FOR UP TO 9 CYCLES. ?ON 14/NOV/2019, SHE RECEIVED LAST DOSE OF INDUCT
     Route: 042
     Dates: start: 20191114
  11. PACLITAXEL. [Suspect]
     Active Substance: PACLITAXEL
     Dosage: DATE OF LAST DOSE (336 UNIT NOT REPORTED) OF STUDY TREATMENT DRUG PACLITAXEL: 02/JAN/2020 FOR SECOND
     Route: 042
     Dates: start: 20200102
  12. HYDROMORPHONE [Concomitant]
     Active Substance: HYDROMORPHONE
     Indication: ABDOMINAL PAIN LOWER
     Route: 048
     Dates: start: 20190923, end: 20191127
  13. SMOFKABIVEN [Concomitant]
     Active Substance: AMINO ACIDS\DEXTROSE\ELECTROLYTES NOS\SOYBEAN OIL
     Indication: VOMITING
     Route: 065
     Dates: start: 20191213, end: 20191219
  14. LAXOBERAL [Concomitant]
     Active Substance: SODIUM PICOSULFATE
     Indication: PROPHYLAXIS
     Dosage: 15 DROP
     Route: 048
  15. JONOSTERIL [CALCIUM ACETATE;MAGNESIUM ACETATE;POTASSIUM ACETATE;SODIUM [Concomitant]
     Indication: VOMITING
     Route: 058
     Dates: start: 20191213, end: 20191219
  16. ATEZOLIZUMAB. [Suspect]
     Active Substance: ATEZOLIZUMAB
     Dosage: SECOND EPISODE OF GENERAL CONDITION DETERIORATION.
     Route: 041
     Dates: start: 20200102
  17. CARBOPLATIN. [Suspect]
     Active Substance: CARBOPLATIN
     Dosage: DATE OF LAST DOSE (750 UNIT NOT REPORTED) OF TREATMENT DRUG CARBOPLATIN: 02/JAN/2020 FOR SECOND EPIS
     Route: 042
     Dates: start: 20200102
  18. PACLITAXEL. [Suspect]
     Active Substance: PACLITAXEL
     Dosage: DATE OF LAST DOSE (330 UNIT NOT REPORTED) OF STUDY TREATMENT DRUG PACLITAXEL: 11/DEC/2019.
     Route: 042
     Dates: start: 20191211
  19. CITALOPRAM [Concomitant]
     Active Substance: CITALOPRAM HYDROBROMIDE
     Route: 048
  20. METAMIZOL [Concomitant]
     Active Substance: METAMIZOLE SODIUM
     Indication: ABDOMINAL PAIN LOWER
     Route: 048
  21. CARBOPLATIN. [Suspect]
     Active Substance: CARBOPLATIN
     Indication: MALIGNANT NEOPLASM OF UNKNOWN PRIMARY SITE
     Dosage: ON 14/NOV/2019, SHE RECEIVED LAST DOSE OF INDUCTION DRUG CARBOPLATIN (750 UNIT NOT REPORTED) PRIOR T
     Route: 042
     Dates: start: 20191114
  22. CARBOPLATIN. [Suspect]
     Active Substance: CARBOPLATIN
     Dosage: DATE OF LAST DOSE (750 UNIT NOT REPORTED) OF TREATMENT DRUG CARBOPLATIN: 11/DEC/2019
     Route: 042
     Dates: start: 20191211
  23. PREGABALIN. [Concomitant]
     Active Substance: PREGABALIN
     Indication: ABDOMINAL PAIN LOWER
     Route: 048
     Dates: end: 20191127
  24. VOMEX [Concomitant]
     Active Substance: DIMENHYDRINATE
     Indication: NAUSEA
     Route: 048
  25. HYDROMORPHONE [Concomitant]
     Active Substance: HYDROMORPHONE
     Indication: VOMITING
     Route: 048
     Dates: start: 20191213
  26. BRYOPHYLLUM [Concomitant]
     Indication: PROPHYLAXIS
     Dosage: TSP OTHER
     Route: 048
  27. ZOPICLON [Concomitant]
     Active Substance: ZOPICLONE
     Route: 048
     Dates: start: 20190904
  28. LACTULOSE. [Concomitant]
     Active Substance: LACTULOSE
     Route: 048
     Dates: start: 20191204, end: 20191205

REACTIONS (1)
  - General physical health deterioration [Recovered/Resolved]

NARRATIVE: CASE EVENT DATE: 20191213
